FAERS Safety Report 23789325 (Version 3)
Quarter: 2024Q3

REPORT INFORMATION
  Report Type: Spontaneous
  Country: CA (occurrence: CA)
  Receive Date: 20240426
  Receipt Date: 20240711
  Transmission Date: 20241016
  Serious: Yes (Hospitalization, Other)
  Sender: SANOFI AVENTIS
  Company Number: CA-SA-SAC20240423000017

PATIENT
  Age: 4 Month
  Sex: Male
  Weight: 4 kg

DRUGS (9)
  1. LOVENOX [Suspect]
     Active Substance: ENOXAPARIN SODIUM
     Indication: Vena cava thrombosis
     Dosage: 11 MG, Q12H
     Route: 058
     Dates: start: 2023, end: 2023
  2. PREVNAR 13 [Suspect]
     Active Substance: STREPTOCOCCUS PNEUMONIAE TYPE 1 CAPSULAR POLYSACCHARIDE DIPHTHERIA CRM197 PROTEIN CONJUGATE ANTIGEN\
     Indication: Immunisation
     Dosage: 0.5 ML
     Route: 030
     Dates: start: 2023
  3. FERROUS SULFATE [Concomitant]
     Active Substance: FERROUS SULFATE
     Indication: Anaemia neonatal
     Dosage: 4.5 MG, Q12H
  4. NYSTATIN [Concomitant]
     Active Substance: NYSTATIN
     Indication: Prophylaxis
     Dosage: UNK
  5. OMEPRAZOLE [Concomitant]
     Active Substance: OMEPRAZOLE
     Indication: Gastrooesophageal reflux disease
     Dosage: 6 MG, QD
     Route: 048
  6. PEDIACEL [Concomitant]
     Active Substance: DIPHTHERIA AND TETANUS TOXOIDS AND ACELLULAR PERTUSSIS ADSORBED, INACTIVATED POLIOVIRUS AND HAEMOPHI
     Indication: Immunisation
     Dosage: 0.5 ML
     Route: 030
  7. PULMICORT TURBUHALER [Concomitant]
     Active Substance: BUDESONIDE
     Indication: Bronchopulmonary dysplasia
     Dosage: UNK
  8. SIMETHICONE (DIMETHICONE) [Concomitant]
     Active Substance: DIMETHICONE
     Dosage: 20 MG, Q6H
     Route: 048
  9. VITAMIN D NOS [Concomitant]
     Active Substance: CHOLECALCIFEROL\ERGOCALCIFEROL
     Dosage: 400 U, QD
     Route: 048

REACTIONS (6)
  - Pain [Recovering/Resolving]
  - Skin necrosis [Recovering/Resolving]
  - Swelling [Recovering/Resolving]
  - Skin discolouration [Recovering/Resolving]
  - Peripheral swelling [Recovering/Resolving]
  - Haematoma [Recovering/Resolving]

NARRATIVE: CASE EVENT DATE: 20230101
